FAERS Safety Report 5887646-9 (Version None)
Quarter: 2008Q3

REPORT INFORMATION
  Report Type: 
  Country: None (occurrence: None)
  Receive Date: 20080916
  Receipt Date: 20080908
  Transmission Date: 20090109
  Serious: Yes (Life-Threatening)
  Sender: FDA-Public Use
  Company Number: TIP2008A00094

PATIENT
  Age: 81 Year
  Sex: Male

DRUGS (5)
  1. LANSOX (LANSOPRAZOLE) (CAPSULES) [Suspect]
     Indication: PROPHYLAXIS AGAINST GASTROINTESTINAL ULCER
     Dosage: 30 MG (30 MG, 1 IN 1 D) ORAL
     Route: 048
     Dates: start: 20080720, end: 20080802
  2. ALLOPURINOL [Suspect]
     Indication: GOUT
     Dosage: 300 MG ORAL
     Route: 048
     Dates: start: 20080601, end: 20080730
  3. ISOSORBIDE MONONITRATE [Concomitant]
  4. DILTIAZEM HYDROCHLORIDE [Concomitant]
  5. LASIX [Concomitant]

REACTIONS (1)
  - STEVENS-JOHNSON SYNDROME [None]
